FAERS Safety Report 5067729-6 (Version None)
Quarter: 2006Q3

REPORT INFORMATION
  Report Type: 
  Country: None (occurrence: None)
  Receive Date: 20060728
  Receipt Date: 20060711
  Transmission Date: 20061208
  Serious: Yes (Hospitalization, Other)
  Sender: FDA-Public Use
  Company Number: US200603005068

PATIENT
  Age: 75 Year
  Sex: Female
  Weight: 48.5 kg

DRUGS (17)
  1. CYMBALTA [Suspect]
     Indication: NEUROPATHY PERIPHERAL
     Dosage: 60 MG, DAILY (1/D)
     Dates: start: 20050916, end: 20060103
  2. ZOCOR [Concomitant]
  3. LIPITOR [Concomitant]
  4. OMEPRAZOLE [Concomitant]
  5. PREDNISONE [Concomitant]
  6. GABITRIL [Concomitant]
  7. SYNTHROID [Concomitant]
  8. POTASSIUM CHLORIDE [Concomitant]
  9. ADVAIR DISKUS 100/50 [Concomitant]
  10. CYANOCOBALAMIN [Concomitant]
  11. GUAIFENESIN [Concomitant]
  12. NEURONTIN [Concomitant]
  13. ACETAMINOPHEN [Concomitant]
  14. ATROVENT [Concomitant]
  15. ALBUTEROL [Concomitant]
  16. PEPCID [Concomitant]
  17. LORTAB [Concomitant]

REACTIONS (4)
  - ALANINE AMINOTRANSFERASE INCREASED [None]
  - ASPARTATE AMINOTRANSFERASE INCREASED [None]
  - CEREBRAL HAEMORRHAGE [None]
  - CEREBROVASCULAR ACCIDENT [None]
